FAERS Safety Report 6450148-5 (Version None)
Quarter: 2009Q4

REPORT INFORMATION
  Report Type: 
  Country: None (occurrence: None)
  Receive Date: 20091113
  Receipt Date: 20090414
  Transmission Date: 20100525
  Serious: Yes (Hospitalization)
  Sender: FDA-Public Use
  Company Number: A-NJ2009-24805

PATIENT
  Age: 75 Year
  Sex: Male

DRUGS (1)
  1. VENTAVIS [Suspect]
     Indication: DRUG USE FOR UNKNOWN INDICATION
     Dosage: RESPIRATORY
     Route: 055
     Dates: start: 20080101, end: 20090416

REACTIONS (8)
  - COUGH [None]
  - FALL [None]
  - FRACTURE [None]
  - HIP FRACTURE [None]
  - HYPOTENSION [None]
  - JAW FRACTURE [None]
  - LACERATION [None]
  - SYNCOPE [None]
